FAERS Safety Report 9374878 (Version 1)
Quarter: 2013Q2

REPORT INFORMATION
  Report Type: Report from Study
  Country: US (occurrence: US)
  Receive Date: 20130628
  Receipt Date: 20130628
  Transmission Date: 20140414
  Serious: Yes (Hospitalization)
  Sender: FDA-Public Use
  Company Number: US-SANOFI-AVENTIS-2013SA064456

PATIENT
  Sex: Male

DRUGS (1)
  1. AUBAGIO [Suspect]
     Route: 048
     Dates: start: 20130323

REACTIONS (1)
  - Grand mal convulsion [Unknown]
